FAERS Safety Report 23112661 (Version 2)
Quarter: 2024Q1

REPORT INFORMATION
  Report Type: Report from Study
  Country: CA (occurrence: CA)
  Receive Date: 20231027
  Receipt Date: 20240111
  Transmission Date: 20240410
  Serious: Yes (Hospitalization)
  Sender: FDA-Public Use
  Company Number: CA-BIOGEN-2023BI01232999

PATIENT
  Age: 70 Year
  Sex: Male

DRUGS (2)
  1. DALFAMPRIDINE [Suspect]
     Active Substance: DALFAMPRIDINE
     Indication: Multiple sclerosis
     Route: 050
     Dates: start: 20121208
  2. OCREVUS [Concomitant]
     Active Substance: OCRELIZUMAB
     Indication: Product used for unknown indication
     Dosage: 3 YEARS
     Route: 050
     Dates: start: 2021

REACTIONS (6)
  - Fall [Recovered/Resolved]
  - Mobility decreased [Unknown]
  - Rib fracture [Not Recovered/Not Resolved]
  - Scapula fracture [Not Recovered/Not Resolved]
  - Gait inability [Not Recovered/Not Resolved]
  - Asthenia [Unknown]

NARRATIVE: CASE EVENT DATE: 20231014
